FAERS Safety Report 9028004 (Version 1)
Quarter: 2013Q1

REPORT INFORMATION
  Report Type: Spontaneous
  Country: NO (occurrence: NO)
  Receive Date: 20130123
  Receipt Date: 20130123
  Transmission Date: 20140127
  Serious: Yes (Other)
  Sender: FDA-Public Use
  Company Number: NO-ROCHE-1180032

PATIENT
  Sex: 0

DRUGS (1)
  1. MABTHERA [Suspect]
     Indication: RHEUMATOID ARTHRITIS
     Route: 065

REACTIONS (9)
  - Herpes zoster [Unknown]
  - Adverse drug reaction [Unknown]
  - Drug ineffective [Unknown]
  - Infection [Unknown]
  - Respiratory tract infection [Unknown]
  - Urinary tract infection [Unknown]
  - Wound infection [Unknown]
  - Gastroenteritis [Unknown]
  - Tooth infection [Unknown]
